FAERS Safety Report 12189767 (Version 2)
Quarter: 2016Q2

REPORT INFORMATION
  Report Type: Spontaneous
  Country: US (occurrence: US)
  Receive Date: 20160318
  Receipt Date: 20160425
  Transmission Date: 20160815
  Serious: No
  Sender: FDA-Public Use
  Company Number: US-009507513-1602USA010230

PATIENT
  Sex: Female

DRUGS (1)
  1. CELESTONE [Suspect]
     Active Substance: BETAMETHASONE

REACTIONS (1)
  - Exposure during pregnancy [Unknown]
